FAERS Safety Report 11882152 (Version 1)
Quarter: 2015Q4

REPORT INFORMATION
  Report Type: Spontaneous
  Country: JP (occurrence: JP)
  Receive Date: 20151231
  Receipt Date: 20151231
  Transmission Date: 20160305
  Serious: Yes (Other)
  Sender: FDA-Public Use
  Company Number: JP-SUN PHARMACEUTICAL INDUSTRIES LTD-2015RR-106765

PATIENT

DRUGS (2)
  1. IRESSA [Concomitant]
     Active Substance: GEFITINIB
     Indication: METASTASIS
     Route: 065
  2. MIDAZOLAM [Suspect]
     Active Substance: MIDAZOLAM\MIDAZOLAM HYDROCHLORIDE
     Indication: SEDATION
     Dosage: 1.5 MG, UNK
     Route: 042

REACTIONS (2)
  - Unresponsive to stimuli [Recovered/Resolved]
  - Respiratory depression [Recovered/Resolved]
